FAERS Safety Report 19603740 (Version 3)
Quarter: 2022Q4

REPORT INFORMATION
  Report Type: Spontaneous
  Country: DE (occurrence: DE)
  Receive Date: 20210723
  Receipt Date: 20221107
  Transmission Date: 20230112
  Serious: Yes (Other)
  Sender: FDA-Public Use
  Company Number: DE-002147023-NVSC2021DE160010

PATIENT
  Age: 49 Year
  Sex: Male

DRUGS (5)
  1. CLOZAPINE [Suspect]
     Active Substance: CLOZAPINE
     Indication: Schizophrenia
     Dosage: 600 MILLIGRAM, QD (250-600 MG QD)
     Route: 048
     Dates: start: 20110517
  2. CLOZAPINE [Suspect]
     Active Substance: CLOZAPINE
     Dosage: 500 MILLIGRAM, QD
     Route: 048
     Dates: start: 20110517
  3. CLOZAPINE [Suspect]
     Active Substance: CLOZAPINE
     Dosage: UNK, QD (DOSE EXCEEDED 500MG DAILY)
     Route: 065
  4. HALOPERIDOL DECANOATE [Concomitant]
     Active Substance: HALOPERIDOL DECANOATE
     Indication: Psychiatric disorder prophylaxis
     Dosage: 50 MILLIGRAM
     Route: 065
  5. LORAZEPAM [Concomitant]
     Active Substance: LORAZEPAM
     Indication: Psychiatric disorder prophylaxis
     Dosage: 1 MILLIGRAM
     Route: 065

REACTIONS (2)
  - Appendicitis perforated [Recovered/Resolved]
  - Product use in unapproved indication [Unknown]
